FAERS Safety Report 21247129 (Version 3)
Quarter: 2022Q3

REPORT INFORMATION
  Report Type: Report from Study
  Country: US (occurrence: US)
  Receive Date: 20220824
  Receipt Date: 20220920
  Transmission Date: 20221027
  Serious: Yes (Hospitalization)
  Sender: FDA-Public Use
  Company Number: US-TAKEDA-2021TUS073259

PATIENT
  Sex: Female
  Weight: 68.02 kg

DRUGS (29)
  1. GLASSIA [Suspect]
     Active Substance: .ALPHA.1-PROTEINASE INHIBITOR HUMAN
     Indication: Alpha-1 antitrypsin deficiency
     Dosage: 60 MILLIGRAM/KILOGRAM, 1/WEEK
     Route: 042
     Dates: start: 20211001
  2. GLASSIA [Suspect]
     Active Substance: .ALPHA.1-PROTEINASE INHIBITOR HUMAN
     Indication: Alpha-1 antitrypsin deficiency
     Dosage: 60 MILLIGRAM/KILOGRAM, 1/WEEK
     Route: 042
     Dates: start: 20211001
  3. GLASSIA [Suspect]
     Active Substance: .ALPHA.1-PROTEINASE INHIBITOR HUMAN
     Dosage: 60 MILLIGRAM/KILOGRAM, 1/WEEK
     Route: 042
     Dates: start: 20211016
  4. GLASSIA [Suspect]
     Active Substance: .ALPHA.1-PROTEINASE INHIBITOR HUMAN
     Dosage: 60 MILLIGRAM/KILOGRAM, 1/WEEK
     Route: 042
     Dates: start: 20211016
  5. DIPHENHYDRAMINE [Concomitant]
     Active Substance: DIPHENHYDRAMINE
  6. LYRICA [Concomitant]
     Active Substance: PREGABALIN
  7. CLARITIN [Concomitant]
     Active Substance: LORATADINE
  8. EPINEPHRINE [Concomitant]
     Active Substance: EPINEPHRINE
  9. SODIUM CHLORIDE [Concomitant]
     Active Substance: SODIUM CHLORIDE
  10. TRAZODONE [Concomitant]
     Active Substance: TRAZODONE HYDROCHLORIDE
  11. AMLODIPINE BESYLATE [Concomitant]
     Active Substance: AMLODIPINE BESYLATE
  12. CELEBREX [Concomitant]
     Active Substance: CELECOXIB
  13. VITAMIN E [Concomitant]
     Active Substance: .ALPHA.-TOCOPHEROL
  14. ZINC [Concomitant]
     Active Substance: ZINC
  15. SINGULAIR [Concomitant]
     Active Substance: MONTELUKAST SODIUM
  16. VITAMIN C [Concomitant]
     Active Substance: ASCORBIC ACID
  17. CYMBALTA [Concomitant]
     Active Substance: DULOXETINE HYDROCHLORIDE
  18. PROMETHAZINE HYDROCHLORIDE [Concomitant]
     Active Substance: PROMETHAZINE HYDROCHLORIDE
  19. NEURONTIN [Concomitant]
     Active Substance: GABAPENTIN
  20. IMITREX [Concomitant]
     Active Substance: SUMATRIPTAN SUCCINATE
  21. EVISTA [Concomitant]
     Active Substance: RALOXIFENE HYDROCHLORIDE
  22. MUCINEX [Concomitant]
     Active Substance: GUAIFENESIN
  23. LIPITOR [Concomitant]
     Active Substance: ATORVASTATIN CALCIUM
  24. PANTOPRAZOLE SODIUM [Concomitant]
     Active Substance: PANTOPRAZOLE SODIUM
  25. CALCIUM\CHOLECALCIFEROL [Concomitant]
     Active Substance: CALCIUM\CHOLECALCIFEROL
  26. GABAPENTIN [Concomitant]
     Active Substance: GABAPENTIN
  27. TIZANIDINE HYDROCHLORIDE [Concomitant]
     Active Substance: TIZANIDINE HYDROCHLORIDE
  28. AMLODIPINE [Concomitant]
     Active Substance: AMLODIPINE BESYLATE
  29. PANTOPRAZOLE [Concomitant]
     Active Substance: PANTOPRAZOLE

REACTIONS (6)
  - Road traffic accident [Unknown]
  - COVID-19 [Unknown]
  - Seasonal allergy [Unknown]
  - Catheter site pain [Unknown]
  - Product dose omission issue [Unknown]
  - Product availability issue [Unknown]
